FAERS Safety Report 4932839-8 (Version None)
Quarter: 2006Q1

REPORT INFORMATION
  Report Type: 
  Country: None (occurrence: None)
  Receive Date: 20060302
  Receipt Date: 20060302
  Transmission Date: 20060701
  Serious: Yes (Hospitalization)
  Sender: FDA-Public Use
  Company Number: None

PATIENT
  Sex: Female
  Weight: 115 kg

DRUGS (1)
  1. MINOCYCLINE HCL [Suspect]
     Indication: HIDRADENITIS
     Dosage: 100 MG PO BID
     Route: 048
     Dates: start: 20050801, end: 20051212

REACTIONS (4)
  - BENIGN INTRACRANIAL HYPERTENSION [None]
  - DIPLOPIA [None]
  - PAPILLOEDEMA [None]
  - VISION BLURRED [None]
